FAERS Safety Report 25283512 (Version 1)
Quarter: 2025Q2

REPORT INFORMATION
  Report Type: Spontaneous
  Country: JP (occurrence: JP)
  Receive Date: 20250508
  Receipt Date: 20250508
  Transmission Date: 20250716
  Serious: Yes (Death, Other)
  Sender: MERCK SHARP & DOHME LLC
  Company Number: JP-MSD-M2024-45284

PATIENT
  Sex: Male

DRUGS (1)
  1. KEYTRUDA [Suspect]
     Active Substance: PEMBROLIZUMAB
     Indication: Bile duct cancer
     Dosage: DOSE DESCRIPTION : 200 MILLIGRAM, Q3W?DAILY DOSE : 9.4 MILLIGRAM?REGIMEN DOSE : 200  MILLIGRAM
     Route: 041

REACTIONS (2)
  - Malignant neoplasm progression [Fatal]
  - Therapeutic product effect incomplete [Unknown]
